FAERS Safety Report 12904442 (Version 4)
Quarter: 2018Q1

REPORT INFORMATION
  Report Type: Report from Study
  Country: IN (occurrence: IN)
  Receive Date: 20161102
  Receipt Date: 20180122
  Transmission Date: 20180508
  Serious: Yes (Hospitalization)
  Sender: FDA-Public Use
  Company Number: IN-PFIZER INC-2016503255

PATIENT
  Age: 53 Year
  Sex: Male
  Weight: 81.5 kg

DRUGS (10)
  1. PF-06439535 [Suspect]
     Active Substance: INVESTIGATIONAL BIOSIMILARS
     Indication: NON-SMALL CELL LUNG CANCER
     Dosage: 1290 MG, EVERY 3 WEEKS
     Route: 042
     Dates: start: 20160914, end: 20161005
  2. PACLITAXEL. [Suspect]
     Active Substance: PACLITAXEL
     Indication: NON-SMALL CELL LUNG CANCER
     Dosage: 420 MG, UNK
     Route: 042
     Dates: start: 20161005, end: 20161005
  3. MUCAINE /00115701/ [Concomitant]
     Indication: PROPHYLAXIS
     Dosage: 2 TSP, 3X/DAY
     Route: 048
     Dates: start: 20161005
  4. DOMSTAL /00498201/ [Concomitant]
     Indication: PROPHYLAXIS
     Dosage: 20 MG, 3X/DAY
     Route: 048
     Dates: start: 20161005, end: 20161007
  5. ANXIT /00424801/ [Concomitant]
     Indication: SEDATIVE THERAPY
     Dosage: 0.5 MG, 1X/DAY
     Route: 048
     Dates: start: 20161005, end: 20161007
  6. CARBOPLATIN. [Suspect]
     Active Substance: CARBOPLATIN
     Indication: NON-SMALL CELL LUNG CANCER
     Dosage: 900 MG, CYCLIC
     Route: 042
     Dates: start: 20161005, end: 20161005
  7. RANTAC [Concomitant]
     Active Substance: RANITIDINE HYDROCHLORIDE
     Indication: PROPHYLAXIS
     Dosage: 150 MG, 2X/DAY
     Route: 048
     Dates: start: 20161005, end: 20161011
  8. LOOZ [Concomitant]
     Indication: CONSTIPATION
     Dosage: 30 ML, AS NEEDED
     Route: 048
     Dates: start: 20161005
  9. GRANISET [Concomitant]
     Indication: VOMITING
     Dosage: 1 MG, 1X/DAY
     Route: 048
     Dates: start: 20161005, end: 20161007
  10. TYDOL /00020001/ [Concomitant]
     Indication: PAIN
     Dosage: 50 MG, 3X/DAY
     Route: 048
     Dates: start: 20161005, end: 20161011

REACTIONS (2)
  - Hyponatraemia [Recovered/Resolved]
  - Anal infection [Recovered/Resolved]

NARRATIVE: CASE EVENT DATE: 20161026
